FAERS Safety Report 24283268 (Version 1)
Quarter: 2024Q3

REPORT INFORMATION
  Report Type: Spontaneous
  Country: US (occurrence: None)
  Receive Date: 20240903
  Receipt Date: 20240903
  Transmission Date: 20241016
  Serious: Yes (Hospitalization)
  Sender: Public
  Company Number: None

PATIENT
  Age: 46 Year
  Sex: Female

DRUGS (5)
  1. ENVARSUS XR [Suspect]
     Active Substance: TACROLIMUS
     Indication: Transplant
     Dosage: 4 MG DAILY ORAL ?
     Route: 048
  2. MYCOPHENOLIC ACID [Suspect]
     Active Substance: MYCOPHENOLIC ACID
     Indication: Transplant
     Dosage: 740 MG TWICE A DAY ORAL
     Route: 048
  3. AMLODIPINE [Concomitant]
     Active Substance: AMLODIPINE BESYLATE
  4. PREDNISONE [Concomitant]
     Active Substance: PREDNISONE
  5. ACETAZOLAMIDE [Concomitant]
     Active Substance: ACETAZOLAMIDE

REACTIONS (2)
  - Nasopharyngitis [None]
  - Immune system disorder [None]

NARRATIVE: CASE EVENT DATE: 20240902
